FAERS Safety Report 14392466 (Version 1)
Quarter: 2018Q1

REPORT INFORMATION
  Report Type: Report from Study
  Country: US (occurrence: US)
  Receive Date: 20180116
  Receipt Date: 20180116
  Transmission Date: 20180509
  Serious: Yes (Other)
  Sender: FDA-Public Use
  Company Number: US-JAZZ-2018-US-000995

PATIENT

DRUGS (1)
  1. XYREM [Suspect]
     Active Substance: SODIUM OXYBATE
     Indication: NARCOLEPSY
     Route: 048

REACTIONS (9)
  - Postural orthostatic tachycardia syndrome [Unknown]
  - Dyspnoea [Unknown]
  - Fibromyalgia [Unknown]
  - Urinary incontinence [Unknown]
  - Frustration tolerance decreased [Unknown]
  - Thinking abnormal [Unknown]
  - Hyperhidrosis [Unknown]
  - Crying [Unknown]
  - Syncope [Unknown]
